FAERS Safety Report 8436201-5 (Version None)
Quarter: 2012Q2

REPORT INFORMATION
  Report Type: 
  Country: None (occurrence: None)
  Receive Date: 20120614
  Receipt Date: 20120607
  Transmission Date: 20120825
  Serious: Yes (Hospitalization)
  Sender: FDA-Public Use
  Company Number: CH-NOVOPROD-353419

PATIENT
  Age: 79 Year
  Sex: Female
  Weight: 55 kg

DRUGS (6)
  1. NOVORAPID [Suspect]
     Indication: TYPE 1 DIABETES MELLITUS
     Dosage: 10 IU (2-4-4-0)
     Route: 058
     Dates: end: 20120501
  2. ATORVASTATIN CALCIUM [Concomitant]
  3. PLAVIX [Concomitant]
  4. LEVEMIR [Suspect]
     Indication: TYPE 1 DIABETES MELLITUS
     Dosage: 2 X 8 IU
     Route: 058
     Dates: end: 20120501
  5. EUTHYROX [Concomitant]
  6. ESCITALOPRAM [Concomitant]

REACTIONS (2)
  - RESPIRATORY FAILURE [None]
  - HYPOGLYCAEMIC COMA [None]
